FAERS Safety Report 15790875 (Version 2)
Quarter: 2019Q1

REPORT INFORMATION
  Report Type: Spontaneous
  Country: US (occurrence: US)
  Receive Date: 20190104
  Receipt Date: 20190212
  Transmission Date: 20190417
  Serious: No
  Sender: FDA-Public Use
  Company Number: US-ASTRAZENECA-2018SF63780

PATIENT
  Sex: Female

DRUGS (1)
  1. BYDUREON BCISE [Suspect]
     Active Substance: EXENATIDE
     Indication: TYPE 2 DIABETES MELLITUS
     Route: 058
     Dates: start: 2018

REACTIONS (9)
  - Skin discolouration [Unknown]
  - Diabetes mellitus inadequate control [Unknown]
  - Device failure [Unknown]
  - Injection site mass [Unknown]
  - Skin disorder [Unknown]
  - Skin discolouration [Unknown]
  - Incorrect dose administered by device [Unknown]
  - Feeling abnormal [Unknown]
  - Contusion [Unknown]

NARRATIVE: CASE EVENT DATE: 2018
